FAERS Safety Report 4507251-6 (Version None)
Quarter: 2005Q1

REPORT INFORMATION
  Report Type: 
  Country: None (occurrence: None)
  Receive Date: 20041025
  Receipt Date: 20040823
  Transmission Date: 20050727
  Serious: Yes (Hospitalization)
  Sender: FDA-Public Use
  Company Number: US-JNJFOC-20040506356

PATIENT
  Age: 76 Year
  Sex: Female
  Weight: 81.6475 kg

DRUGS (8)
  1. REMICADE [Suspect]
     Indication: RHEUMATOID ARTHRITIS
     Dosage: INTRAVENOUS
     Route: 042
     Dates: start: 20030901, end: 20030901
  2. METHOTREXATE [Concomitant]
  3. PREDNISONE [Concomitant]
  4. FOLIC ACID [Concomitant]
  5. COUMADIN [Concomitant]
  6. PROTONIX [Concomitant]
  7. TAPAZOLE [Concomitant]
  8. DIAZIDE (GLICLAZIDE) [Concomitant]

REACTIONS (4)
  - DEEP VEIN THROMBOSIS [None]
  - INFLAMMATION [None]
  - NEUROPATHY [None]
  - PULMONARY EMBOLISM [None]
